FAERS Safety Report 19612921 (Version 1)
Quarter: 2021Q3

REPORT INFORMATION
  Report Type: Spontaneous
  Country: NL (occurrence: NL)
  Receive Date: 20210727
  Receipt Date: 20210727
  Transmission Date: 20211014
  Serious: Yes (Other)
  Sender: FDA-Public Use
  Company Number: NL-TEVA-2021-NL-1936190

PATIENT
  Age: 60 Year
  Sex: Female

DRUGS (6)
  1. METOPROLOL TABLET MGA  50MG (SUCCINAAT) / BRAND NAME NOT SPECIFIED [Concomitant]
     Active Substance: METOPROLOL SUCCINATE
     Dosage: 50 MG, THERAPY START AND END DATE: ASKU
  2. IRBESARTAN TABLET 300MG / BRAND NAME NOT SPECIFIED [Concomitant]
     Dosage: 300 MG, THERAPY START AND END DATE: ASKU
  3. PANTOPRAZOL TABLET MSR 20MG / BRAND NAME NOT SPECIFIED [Concomitant]
     Active Substance: PANTOPRAZOLE
     Dosage: 20 MG, THERAPY START AND END DATE: ASKU
  4. CLOPIDOGREL TABLET   75MG / BRAND NAME NOT SPECIFIED [Concomitant]
     Active Substance: CLOPIDOGREL BISULFATE
     Dosage: 75 MG, THERAPY START AND END DATE: ASKU
  5. SIMVASTATINE TABLET FO 80MG / BRAND NAME NOT SPECIFIED [Concomitant]
     Active Substance: SIMVASTATIN
     Dosage: 80 MG, THERAPY START AND END DATE: ASKU
  6. CIPROFLOXACINE TABLET 500MG / BRAND NAME NOT SPECIFIED [Suspect]
     Active Substance: CIPROFLOXACIN
     Dosage: 2D500MG, THERAPY END DATE: ASKU
     Route: 065
     Dates: start: 20210525

REACTIONS (1)
  - Dermatitis bullous [Not Recovered/Not Resolved]

NARRATIVE: CASE EVENT DATE: 20210613
